FAERS Safety Report 24881988 (Version 2)
Quarter: 2025Q1

REPORT INFORMATION
  Report Type: Spontaneous
  Country: JP (occurrence: JP)
  Receive Date: 20250124
  Receipt Date: 20250312
  Transmission Date: 20250409
  Serious: Yes (Other)
  Sender: ROCHE
  Company Number: JP-CHUGAI-2025001152

PATIENT
  Age: 7 Decade
  Sex: Male

DRUGS (2)
  1. AVASTIN [Suspect]
     Active Substance: BEVACIZUMAB
     Indication: Hepatocellular carcinoma
     Route: 042
     Dates: start: 20241001, end: 20241022
  2. TECENTRIQ [Suspect]
     Active Substance: ATEZOLIZUMAB
     Indication: Hepatocellular carcinoma
     Route: 042
     Dates: start: 20241001, end: 20241022

REACTIONS (3)
  - Cholecystitis [Recovered/Resolved]
  - Gallbladder rupture [Unknown]
  - Intra-abdominal haematoma [Unknown]

NARRATIVE: CASE EVENT DATE: 20241201
